FAERS Safety Report 9472411 (Version 5)
Quarter: 2013Q4

REPORT INFORMATION
  Report Type: Spontaneous
  Country: GB (occurrence: GB)
  Receive Date: 20130823
  Receipt Date: 20131104
  Transmission Date: 20140711
  Serious: Yes (Other)
  Sender: FDA-Public Use
  Company Number: GB-PFIZER INC-2013241260

PATIENT
  Sex: Male
  Weight: 1.86 kg

DRUGS (5)
  1. PREGABALIN [Suspect]
     Dosage: UNK
     Route: 064
  2. TRAMADOL HCL [Suspect]
     Indication: PAIN
     Dosage: 100 MG, 1X/DAY
     Route: 064
  3. VENLAFAXINE HCL [Suspect]
     Indication: MOOD ALTERED
     Dosage: 225 MG, 1X/DAY
     Route: 064
  4. TEGRETOL [Suspect]
     Indication: PAIN
     Dosage: 200 MG, 2X/DAY
     Route: 064
  5. TEGRETOL [Suspect]
     Dosage: 200 MG, 2X/DAY
     Route: 063

REACTIONS (8)
  - Maternal exposure during pregnancy [Unknown]
  - Exposure during breast feeding [Unknown]
  - Jaundice neonatal [Unknown]
  - Premature baby [Unknown]
  - Neonatal respiratory distress syndrome [Unknown]
  - Apgar score low [Unknown]
  - Head circumference abnormal [Unknown]
  - Low birth weight baby [Unknown]
